FAERS Safety Report 10367448 (Version 1)
Quarter: 2014Q1

REPORT INFORMATION
  Report Type: Spontaneous
  Country: US (occurrence: None)
  Receive Date: 20140306
  Receipt Date: 20140306
  Transmission Date: 20141002
  Serious: Yes (Other)
  Sender: FDA-Public Use
  Company Number: 163-21880-13071659

PATIENT
  Age: 83 Year
  Sex: Female
  Weight: 44.5 kg

DRUGS (4)
  1. REVLIMID (LENALIDOMIDE) (10 MILLIGRAM, CAPSULES) [Suspect]
     Indication: MYELODYSPLASTIC SYNDROME
     Route: 048
     Dates: start: 201007
  2. SOTALOL HYDROCHLORIDE (SOTALOL HYDROCHLORIDE) [Concomitant]
  3. CALCIUM + D (OS-CAL) [Concomitant]
  4. MULTIVITAMIN (MULTIVITAMINS) [Concomitant]

REACTIONS (2)
  - Full blood count decreased [None]
  - Infection [None]
